FAERS Safety Report 11529129 (Version 3)
Quarter: 2017Q4

REPORT INFORMATION
  Report Type: Report from Study
  Country: US (occurrence: US)
  Receive Date: 20150921
  Receipt Date: 20171025
  Transmission Date: 20180320
  Serious: No
  Sender: FDA-Public Use
  Company Number: US-009507513-1509USA005223

PATIENT
  Age: 74 Year
  Sex: Female

DRUGS (1)
  1. DULERA [Suspect]
     Active Substance: FORMOTEROL FUMARATE DIHYDRATE\MOMETASONE FUROATE
     Indication: ASTHMA
     Dosage: 200/5 MICROGRAM/ 2 PUFFS, TWICE DAILY  (TWO PUFFS IN THE MORNING AND TWO PUFFS AT NIGHT)
     Route: 055

REACTIONS (7)
  - Fall [Unknown]
  - Circumstance or information capable of leading to medication error [Unknown]
  - Asthenia [Unknown]
  - Eye swelling [Unknown]
  - Joint swelling [Unknown]
  - Pain [Unknown]
  - Dry mouth [Not Recovered/Not Resolved]

NARRATIVE: CASE EVENT DATE: 201508
